FAERS Safety Report 7421792-3 (Version None)
Quarter: 2011Q2

REPORT INFORMATION
  Report Type: 
  Country: None (occurrence: None)
  Receive Date: 20110418
  Receipt Date: 20110408
  Transmission Date: 20111010
  Serious: Yes (Hospitalization, Other)
  Sender: FDA-Public Use
  Company Number: US-BAXTER-2011BH010296

PATIENT
  Sex: Female

DRUGS (1)
  1. DIANEAL [Suspect]
     Indication: PERITONEAL DIALYSIS
     Route: 033
     Dates: start: 20101215

REACTIONS (5)
  - JAW DISORDER [None]
  - RIB FRACTURE [None]
  - OESOPHAGEAL DISORDER [None]
  - FALL [None]
  - DEHYDRATION [None]
